FAERS Safety Report 13350524 (Version 1)
Quarter: 2017Q1

REPORT INFORMATION
  Report Type: Spontaneous
  Country: US (occurrence: US)
  Receive Date: 20170320
  Receipt Date: 20170320
  Transmission Date: 20170429
  Serious: Yes (Life-Threatening, Hospitalization, Other)
  Sender: FDA-Public Use
  Company Number: US-GLENMARK PHARMACEUTICALS-2017GMK026775

PATIENT
  Age: 30 Year
  Sex: Female

DRUGS (4)
  1. BUPIVICAINE [Suspect]
     Active Substance: BUPIVACAINE
     Indication: EPIDURAL ANALGESIA
     Dosage: AT A RATE OF 14 ML/HR WITH AN OPTION OF A 10ML BOLUS EVERY
     Route: 042
  2. EPINEPHRINE. [Suspect]
     Active Substance: EPINEPHRINE
     Indication: EPIDURAL ANALGESIA
     Dosage: 1:600,000; AT A RATE OF 14 ML/HR WITH AN OPTION OF A 10ML BOLUS EVERY 15 MINUTES
     Route: 042
  3. LIDOCAINE. [Suspect]
     Active Substance: LIDOCAINE
     Indication: PRODUCT USED FOR UNKNOWN INDICATION
     Dosage: UNK
     Route: 065
  4. FENTANYL. [Suspect]
     Active Substance: FENTANYL
     Indication: EPIDURAL ANALGESIA
     Dosage: 50 ?G/ML
     Route: 042

REACTIONS (8)
  - Hypotension [Recovered/Resolved]
  - Incorrect drug administration rate [Unknown]
  - Maternal exposure during pregnancy [Unknown]
  - Dyspnoea [Unknown]
  - Mental status changes [Unknown]
  - Muscular weakness [Unknown]
  - Spinal anaesthesia [Unknown]
  - Nausea [Unknown]
